FAERS Safety Report 4710443-4 (Version None)
Quarter: 2005Q3

REPORT INFORMATION
  Report Type: 
  Country: None (occurrence: None)
  Receive Date: 20050707
  Receipt Date: 20050627
  Transmission Date: 20060218
  Serious: Yes (Other)
  Sender: FDA-Public Use
  Company Number: 200510206BYL

PATIENT
  Age: 70 Year
  Sex: Male
  Weight: 64 kg

DRUGS (6)
  1. ASPIRIN [Suspect]
     Indication: PHARYNGOLARYNGEAL PAIN
     Dosage: 1000 MG, TOTAL DAILY, ORAL
     Route: 048
     Dates: start: 20050420
  2. MUCOSAL [Concomitant]
  3. CEFZON [Concomitant]
  4. TRANSAMIN [Concomitant]
  5. COCARL [Concomitant]
  6. AZUNOL GARGLE LIQUID [Concomitant]

REACTIONS (2)
  - DEAFNESS UNILATERAL [None]
  - EAR DISCOMFORT [None]
